FAERS Safety Report 5867742-2 (Version None)
Quarter: 2008Q3

REPORT INFORMATION
  Report Type: 
  Country: None (occurrence: None)
  Receive Date: 20080902
  Receipt Date: 20080229
  Transmission Date: 20090109
  Serious: No
  Sender: FDA-Public Use
  Company Number: US-ABBOTT-08P-163-0440777-00

PATIENT
  Age: 25 Year
  Sex: Male

DRUGS (5)
  1. DEPAKOTE ER [Suspect]
     Indication: EPILEPSY
     Route: 048
     Dates: start: 20071201, end: 20080225
  2. DEPAKOTE ER [Suspect]
     Route: 048
     Dates: start: 20050101, end: 20071201
  3. DEPAKOTE ER [Suspect]
     Route: 048
     Dates: start: 20080225
  4. ZONISAMIDE [Suspect]
     Indication: EPILEPSY
     Route: 048
     Dates: start: 20080127, end: 20080225
  5. ZONISAMIDE [Suspect]
     Route: 048
     Dates: start: 20080225

REACTIONS (4)
  - ABDOMINAL DISCOMFORT [None]
  - COMPLEX PARTIAL SEIZURES [None]
  - DIARRHOEA [None]
  - DRUG LEVEL DECREASED [None]
